FAERS Safety Report 9482422 (Version 1)
Quarter: 2013Q3

REPORT INFORMATION
  Report Type: Spontaneous
  Country: US (occurrence: US)
  Receive Date: 20130828
  Receipt Date: 20130828
  Transmission Date: 20140515
  Serious: Yes (Hospitalization)
  Sender: FDA-Public Use
  Company Number: US-PFIZER INC-2013248438

PATIENT
  Sex: Female
  Weight: 73.47 kg

DRUGS (5)
  1. CHANTIX [Suspect]
     Indication: SMOKING CESSATION THERAPY
     Dosage: UNK
     Route: 048
     Dates: start: 201212
  2. CHANTIX [Suspect]
     Dosage: UNK
     Route: 048
     Dates: start: 2013, end: 20130823
  3. LOPRESSOR [Concomitant]
     Indication: BLOOD PRESSURE ABNORMAL
     Dosage: 50 MG, 2X/DAY
  4. NORCO [Concomitant]
     Indication: PAIN
     Dosage: HYDROCODONE BITARTRATE 5MG /ACETAMINOPHEN 325MG, AS NEEDED
  5. PROTONIX [Concomitant]
     Indication: PROPHYLAXIS
     Dosage: 40MG DAILY

REACTIONS (1)
  - Diverticulum [Recovering/Resolving]
